FAERS Safety Report 16468543 (Version 1)
Quarter: 2019Q2

REPORT INFORMATION
  Report Type: Spontaneous
  Country: DE (occurrence: DE)
  Receive Date: 20190624
  Receipt Date: 20190624
  Transmission Date: 20190711
  Serious: Yes (Other)
  Sender: FDA-Public Use
  Company Number: DE-ACCORD-134445

PATIENT
  Age: 58 Year
  Sex: Male

DRUGS (1)
  1. MITOMYCIN. [Suspect]
     Active Substance: MITOMYCIN
     Indication: BLADDER NEOPLASM
     Dosage: 4 INSTILLATIONS WITHOUT AE, AFTER 5TH: URETHRITIS, PENILE EDEMA/EXFOLIATION,?AFTER 7TH: URTICARIA
     Route: 043

REACTIONS (4)
  - Urticaria [Recovering/Resolving]
  - Penile exfoliation [Not Recovered/Not Resolved]
  - Penile oedema [Not Recovered/Not Resolved]
  - Urethritis [Not Recovered/Not Resolved]

NARRATIVE: CASE EVENT DATE: 2018
